FAERS Safety Report 14416751 (Version 1)
Quarter: 2018Q1

REPORT INFORMATION
  Report Type: Spontaneous
  Country: US (occurrence: US)
  Receive Date: 20180119
  Receipt Date: 20180119
  Transmission Date: 20180509
  Serious: No
  Sender: FDA-Public Use
  Company Number: None

PATIENT
  Age: 34 Year
  Sex: Male

DRUGS (13)
  1. LORATADINE. [Concomitant]
     Active Substance: LORATADINE
  2. ACETAZOLAMIDE. [Concomitant]
     Active Substance: ACETAZOLAMIDE
  3. VINCRISTINE [Concomitant]
     Active Substance: VINCRISTINE
  4. CHLORHEXADINE [Concomitant]
     Active Substance: CHLORHEXIDINE
  5. LEUCOVORIN. [Concomitant]
     Active Substance: LEUCOVORIN
  6. ACYCLOVIR. [Concomitant]
     Active Substance: ACYCLOVIR
  7. ENOXAPARIN [Concomitant]
     Active Substance: ENOXAPARIN
  8. GABAPENTIN. [Concomitant]
     Active Substance: GABAPENTIN
  9. METHOTREXATE. [Suspect]
     Active Substance: METHOTREXATE
     Indication: NEOPLASM MALIGNANT
     Route: 042
     Dates: start: 20171013
  10. MERCAPTOPURINE. [Concomitant]
     Active Substance: MERCAPTOPURINE
  11. ACETAMINOPHEN. [Concomitant]
     Active Substance: ACETAMINOPHEN
  12. DEXAMETHASONE. [Concomitant]
     Active Substance: DEXAMETHASONE
  13. ONDANSETRON [Concomitant]
     Active Substance: ONDANSETRON

REACTIONS (1)
  - Acute kidney injury [None]

NARRATIVE: CASE EVENT DATE: 20171015
